FAERS Safety Report 24158510 (Version 6)
Quarter: 2024Q4

REPORT INFORMATION
  Report Type: Spontaneous
  Country: UY (occurrence: UY)
  Receive Date: 20240731
  Receipt Date: 20241128
  Transmission Date: 20250114
  Serious: No
  Sender: PFIZER
  Company Number: UY-PFIZER INC-202400224588

PATIENT
  Age: 16 Year
  Sex: Female

DRUGS (2)
  1. GENOTROPIN [Suspect]
     Active Substance: SOMATROPIN
     Indication: Growth hormone deficiency
     Dosage: 1.5 MG, DAILY
     Dates: start: 20150924, end: 20240723
  2. GENOTROPIN [Suspect]
     Active Substance: SOMATROPIN
     Dosage: 1.5 MG, DAILY
     Dates: start: 20240730

REACTIONS (2)
  - Drug dose omission by device [Unknown]
  - Device delivery system issue [Unknown]
